FAERS Safety Report 4712937-4 (Version None)
Quarter: 2005Q3

REPORT INFORMATION
  Report Type: 
  Country: None (occurrence: None)
  Receive Date: 20050713
  Receipt Date: 20050426
  Transmission Date: 20060218
  Serious: Yes (Hospitalization)
  Sender: FDA-Public Use
  Company Number: PHEH2005US07584

PATIENT
  Age: 13 Year
  Sex: Female
  Weight: 40 kg

DRUGS (9)
  1. PREVACID [Concomitant]
     Dosage: 30 MG, QD
     Route: 048
  2. ADDERALL 30 [Concomitant]
  3. RISPERDAL [Concomitant]
     Dosage: 1.5 TABLETS BID
  4. ADVAIR DISKUS 100/50 [Concomitant]
  5. DEPAKOTE [Concomitant]
  6. MIRALAX [Concomitant]
  7. PROPRANOLOL [Concomitant]
  8. SINGULAIR [Concomitant]
  9. ZELNORM [Suspect]
     Indication: CONSTIPATION
     Dosage: 6 MG, QD
     Route: 048
     Dates: start: 20050328, end: 20050414

REACTIONS (5)
  - ABDOMINAL PAIN [None]
  - DIARRHOEA [None]
  - LIPASE INCREASED [None]
  - PANCREATITIS [None]
  - VOMITING [None]
